FAERS Safety Report 7772086-8 (Version None)
Quarter: 2011Q3

REPORT INFORMATION
  Report Type: 
  Country: None (occurrence: None)
  Receive Date: 20110922
  Receipt Date: 20100802
  Transmission Date: 20111222
  Serious: Yes (Other)
  Sender: FDA-Public Use
  Company Number: US-ASTRAZENECA-2010SE23150

PATIENT
  Sex: Male
  Weight: 93 kg

DRUGS (6)
  1. METFORMIN [Concomitant]
     Indication: DIABETES MELLITUS
  2. NEURONTIN [Concomitant]
     Indication: EPILEPSY
  3. SEROQUEL XR [Suspect]
     Indication: HALLUCINATION, AUDITORY
     Route: 048
     Dates: end: 20100401
  4. DILANTIN [Concomitant]
     Indication: CONVULSION
  5. PROZAC [Concomitant]
     Indication: DEPRESSION
  6. GLUCOPHAGE [Concomitant]
     Indication: DIABETES MELLITUS

REACTIONS (2)
  - CONVULSION [None]
  - BLOOD GLUCOSE INCREASED [None]
